FAERS Safety Report 25481139 (Version 2)
Quarter: 2025Q3

REPORT INFORMATION
  Report Type: Spontaneous
  Country: US (occurrence: US)
  Receive Date: 20250626
  Receipt Date: 20250704
  Transmission Date: 20251020
  Serious: No
  Sender: BAUSCH AND LOMB
  Company Number: US-BAUSCH-BL-2025-007647

PATIENT
  Age: 4 Month
  Sex: Male

DRUGS (2)
  1. DIURIL [Suspect]
     Active Substance: CHLOROTHIAZIDE
     Indication: Diabetes insipidus
     Route: 065
  2. DIURIL [Suspect]
     Active Substance: CHLOROTHIAZIDE
     Indication: Product use in unapproved indication

REACTIONS (2)
  - Product use in unapproved indication [Unknown]
  - Product prescribing issue [Unknown]
